FAERS Safety Report 8278214-2 (Version None)
Quarter: 2012Q2

REPORT INFORMATION
  Report Type: 
  Country: None (occurrence: None)
  Receive Date: 20120412
  Receipt Date: 20110502
  Transmission Date: 20120825
  Serious: No
  Sender: FDA-Public Use
  Company Number: US-ASTRAZENECA-2011SE26027

PATIENT
  Age: 23367 Day
  Sex: Male
  Weight: 72.6 kg

DRUGS (5)
  1. FLOMAX [Concomitant]
  2. VYTORIN [Concomitant]
  3. EYE DROPS [Concomitant]
  4. VITAMIN TAB [Concomitant]
  5. NEXIUM [Suspect]
     Route: 048
     Dates: start: 20100430

REACTIONS (1)
  - SENSATION OF BLOOD FLOW [None]
